FAERS Safety Report 15700728 (Version 3)
Quarter: 2019Q3

REPORT INFORMATION
  Report Type: Spontaneous
  Country: US (occurrence: US)
  Receive Date: 20181207
  Receipt Date: 20190717
  Transmission Date: 20191004
  Serious: Yes (Other)
  Sender: FDA-Public Use
  Company Number: US-SA-2018SA331452

PATIENT
  Age: 39 Year
  Sex: Female
  Weight: 63.5 kg

DRUGS (4)
  1. PARAPLATIN [Concomitant]
     Active Substance: CARBOPLATIN
  2. TAXOTERE [Suspect]
     Active Substance: DOCETAXEL
     Dosage: 137 MG, Q3W
     Route: 042
     Dates: start: 20160922, end: 20160922
  3. HERCEPTIN [Concomitant]
     Active Substance: TRASTUZUMAB
  4. TAXOTERE [Suspect]
     Active Substance: DOCETAXEL
     Indication: BREAST CANCER FEMALE
     Dosage: 137 MG, Q3W
     Route: 042
     Dates: start: 20160609, end: 20160609

REACTIONS (2)
  - Alopecia [Recovering/Resolving]
  - Psychological trauma [Unknown]

NARRATIVE: CASE EVENT DATE: 201606
